FAERS Safety Report 8030246-5 (Version None)
Quarter: 2012Q1

REPORT INFORMATION
  Report Type: 
  Country: None (occurrence: None)
  Receive Date: 20120109
  Receipt Date: 20120105
  Transmission Date: 20120608
  Serious: Yes (Death, Other)
  Sender: FDA-Public Use
  Company Number: PHFR2006GB01485

PATIENT
  Sex: Female
  Weight: 69 kg

DRUGS (6)
  1. BETAHISTINE [Concomitant]
     Dosage: 1 UKN, TID
     Route: 048
  2. METOCLOPRAMIDE [Concomitant]
     Dosage: 10 MG, TID
     Route: 048
  3. HYOSCINE HYDROBROMIDE [Concomitant]
     Indication: SALIVARY HYPERSECRETION
     Dosage: 150 MG, DAILY
     Route: 048
  4. NIZATIDINE [Concomitant]
     Dosage: 150 MG, AT NIGHT
     Route: 048
  5. CLOZARIL [Suspect]
     Indication: SCHIZOPHRENIA
     Dosage: 300 MG, BID
     Route: 048
     Dates: start: 20031208
  6. ACETAMINOPHEN AND CODEINE PHOSPHATE [Concomitant]
     Dosage: 2 UKN, TID
     Route: 048

REACTIONS (8)
  - LARGE INTESTINE PERFORATION [None]
  - HEPATIC CONGESTION [None]
  - INFECTIOUS PERITONITIS [None]
  - PLATELET COUNT INCREASED [None]
  - CONSTIPATION [None]
  - PAIN [None]
  - NEUTROPHIL COUNT INCREASED [None]
  - LARGE INTESTINAL OBSTRUCTION [None]
